FAERS Safety Report 10421488 (Version 2)
Quarter: 2014Q3

REPORT INFORMATION
  Report Type: Spontaneous
  Country: US (occurrence: US)
  Receive Date: 20140901
  Receipt Date: 20140926
  Transmission Date: 20150326
  Serious: No
  Sender: FDA-Public Use
  Company Number: US-009507513-1408USA016150

PATIENT
  Sex: Female
  Weight: 98.82 kg

DRUGS (1)
  1. NEXPLANON [Suspect]
     Active Substance: ETONOGESTREL
     Dosage: DOSE, FREQUENCY: ETONOGESTREL IMPLANT, THERAPY ROUTE: LEFT ARM
     Route: 059
     Dates: start: 20130605

REACTIONS (1)
  - Device kink [Unknown]
